FAERS Safety Report 8116514-7 (Version None)
Quarter: 2012Q1

REPORT INFORMATION
  Report Type: 
  Country: None (occurrence: None)
  Receive Date: 20120206
  Receipt Date: 20120127
  Transmission Date: 20120608
  Serious: Yes (Hospitalization)
  Sender: FDA-Public Use
  Company Number: US-BAYER-2011-071000

PATIENT
  Age: 39 Year
  Sex: Female
  Weight: 58.957 kg

DRUGS (16)
  1. YASMIN [Suspect]
     Indication: CONTRACEPTION
     Dosage: UNK
     Dates: start: 20020701, end: 20041001
  2. MEDROL [Concomitant]
  3. NEXIUM [Concomitant]
     Dosage: 40 MG
  4. H-C TUSSIVE [Concomitant]
  5. OXYCONTIN [Concomitant]
     Dosage: 30 MG
  6. AMBIEN [Concomitant]
  7. YASMIN [Suspect]
     Indication: PREMENSTRUAL SYNDROME
  8. MEPERIDINE/PROMETHAZINE [Concomitant]
  9. DEXAMETHASONE [Concomitant]
     Dosage: 1 CC
     Route: 030
  10. PHENERGAN [Concomitant]
     Dosage: 25 MG
  11. LEVAQUIN [Concomitant]
     Dosage: 500 MG
  12. MIDRIN [Concomitant]
     Route: 048
  13. FLEXERIL [Concomitant]
     Dosage: 10 MG, UNK
  14. PERCOCET [Concomitant]
     Dosage: 7.5/500
  15. SKELAXIN [Concomitant]
     Dosage: 400 MG
     Route: 048
  16. DEXAMETHASONE ACETATE [Concomitant]
     Dosage: 1 CC
     Route: 030

REACTIONS (6)
  - ANXIETY [None]
  - EMOTIONAL DISTRESS [None]
  - PULMONARY EMBOLISM [None]
  - DEEP VEIN THROMBOSIS [None]
  - PAIN [None]
  - ANHEDONIA [None]
